FAERS Safety Report 8849373 (Version 2)
Quarter: 2012Q4

REPORT INFORMATION
  Report Type: 
  Country: US (occurrence: US)
  Receive Date: 20121017
  Receipt Date: 20121022
  Transmission Date: 20130627
  Serious: Yes (Hospitalization, Other)
  Sender: FDA-Public Use
  Company Number: US-VERTEX PHARMACEUTICAL INC.-AE-2011-000749

PATIENT
  Age: 57 Year
  Sex: Male

DRUGS (4)
  1. INCIVEK [Suspect]
     Indication: HEPATITIS C
     Dates: start: 20110722
  2. RIBAVIRIN [Suspect]
     Indication: HEPATITIS C
     Dates: start: 20110722
  3. PEGINTERFERON [Suspect]
     Indication: HEPATITIS C
     Dates: start: 20110722
  4. FLOMAX                             /01280302/ [Concomitant]
     Indication: PROSTATIC DISORDER

REACTIONS (7)
  - Hypotension [Recovered/Resolved]
  - Syncope [Recovered/Resolved]
  - Road traffic accident [Recovered/Resolved]
  - Drug interaction [Recovered/Resolved]
  - Headache [Unknown]
  - Pain [Unknown]
  - Intervertebral disc disorder [Unknown]
